FAERS Safety Report 6942207-5 (Version None)
Quarter: 2010Q3

REPORT INFORMATION
  Report Type: 
  Country: None (occurrence: None)
  Receive Date: 20100823
  Receipt Date: 20100805
  Transmission Date: 20110219
  Serious: Yes (Hospitalization)
  Sender: FDA-Public Use
  Company Number: DSA_43660_2010

PATIENT
  Sex: Female

DRUGS (2)
  1. ATIVAN [Suspect]
     Indication: PRODUCT USED FOR UNKNOWN INDICATION
     Dosage: DF
     Dates: start: 20030101
  2. ALCOHOL [Suspect]
     Indication: PRODUCT USED FOR UNKNOWN INDICATION
     Dosage: DF

REACTIONS (2)
  - ALCOHOL USE [None]
  - ROAD TRAFFIC ACCIDENT [None]
